FAERS Safety Report 16383393 (Version 1)
Quarter: 2019Q2

REPORT INFORMATION
  Report Type: Spontaneous
  Country: US (occurrence: US)
  Receive Date: 20190516
  Receipt Date: 20190516
  Transmission Date: 20190711
  Serious: Yes (Hospitalization)
  Sender: FDA-Public Use
  Company Number: None

PATIENT
  Age: 19 Year
  Sex: Female
  Weight: 50 kg

DRUGS (6)
  1. GASTROVIEW 30 ML ONCE [Concomitant]
  2. PIPERACILLIN/TAZOBACTAM [Suspect]
     Active Substance: PIPERACILLIN SODIUM\TAZOBACTAM SODIUM
     Indication: ABSCESS INTESTINAL
     Route: 042
     Dates: start: 20181226, end: 20181227
  3. PIPERACILLIN/TAZOBACTAM [Suspect]
     Active Substance: PIPERACILLIN SODIUM\TAZOBACTAM SODIUM
     Indication: ABDOMINAL PAIN
     Route: 042
     Dates: start: 20181226, end: 20181227
  4. METRONIDAZOLE 500 MG IV [Concomitant]
  5. HYDROMORPHONE 0.2 MG EVERY 2 HRS PRN [Concomitant]
  6. IOPAMIDOL 61% 100 ML ONCE [Concomitant]

REACTIONS (2)
  - Thrombocytopenia [None]
  - Platelet count decreased [None]

NARRATIVE: CASE EVENT DATE: 20181227
